FAERS Safety Report 14798408 (Version 1)
Quarter: 2018Q2

REPORT INFORMATION
  Report Type: Spontaneous
  Country: US (occurrence: US)
  Receive Date: 20180415
  Receipt Date: 20180415
  Transmission Date: 20180711
  Serious: Yes (Hospitalization)
  Sender: FDA-Public Use
  Company Number: None

PATIENT
  Age: 17 Year
  Sex: Female
  Weight: 49.5 kg

DRUGS (2)
  1. XYZAL [Suspect]
     Active Substance: LEVOCETIRIZINE DIHYDROCHLORIDE
     Dosage: ?          QUANTITY:1 TABLET(S);?
     Route: 048
  2. ZOLOFT [Concomitant]
     Active Substance: SERTRALINE HYDROCHLORIDE

REACTIONS (2)
  - Hallucination [None]
  - Suicidal ideation [None]

NARRATIVE: CASE EVENT DATE: 20180405
